FAERS Safety Report 8239611-4 (Version None)
Quarter: 2012Q1

REPORT INFORMATION
  Report Type: 
  Country: None (occurrence: None)
  Receive Date: 20120328
  Receipt Date: 20120322
  Transmission Date: 20120608
  Serious: Yes (Other)
  Sender: FDA-Public Use
  Company Number: US-BAYER-2012-028634

PATIENT
  Age: 75 Year
  Sex: Female

DRUGS (1)
  1. CIPROFLOXACIN HCL [Suspect]

REACTIONS (3)
  - IRRITABLE BOWEL SYNDROME [None]
  - TENDON RUPTURE [None]
  - RASH MACULAR [None]
